FAERS Safety Report 16489765 (Version 1)
Quarter: 2019Q2

REPORT INFORMATION
  Report Type: Spontaneous
  Country: US (occurrence: US)
  Receive Date: 20190518
  Receipt Date: 20190518
  Transmission Date: 20190711
  Serious: No
  Sender: FDA-Public Use
  Company Number: None

PATIENT
  Age: 35 Year
  Sex: Female

DRUGS (2)
  1. FONDAPARINUX SOL 2.5MG/.5ML [Suspect]
     Active Substance: FONDAPARINUX
     Route: 058
     Dates: start: 20180905
  2. ESCITALOPRAM [Concomitant]
     Active Substance: ESCITALOPRAM OXALATE

REACTIONS (2)
  - Injection site pruritus [None]
  - Therapy cessation [None]

NARRATIVE: CASE EVENT DATE: 20190101
